FAERS Safety Report 6541586-0 (Version None)
Quarter: 2010Q1

REPORT INFORMATION
  Report Type: 
  Country: None (occurrence: None)
  Receive Date: 20100119
  Receipt Date: 20100113
  Transmission Date: 20100710
  Serious: Yes (Other)
  Sender: FDA-Public Use
  Company Number: US-ROCHE-679157

PATIENT
  Sex: Female
  Weight: 80.7 kg

DRUGS (1)
  1. CAPECITABINE [Suspect]
     Dosage: 2000 MG IN AM AND 1500 MG IN PM
     Route: 048
     Dates: start: 20081011, end: 20100104

REACTIONS (1)
  - MALIGNANT NEOPLASM PROGRESSION [None]
